FAERS Safety Report 5914324-X (Version None)
Quarter: 2008Q4

REPORT INFORMATION
  Report Type: 
  Country: None (occurrence: None)
  Receive Date: 20081007
  Receipt Date: 20080924
  Transmission Date: 20090506
  Serious: Yes (Hospitalization)
  Sender: FDA-Public Use
  Company Number: 2007BI022881

PATIENT
  Age: 48 Year
  Sex: Female

DRUGS (13)
  1. AVONEX [Suspect]
     Indication: MULTIPLE SCLEROSIS
     Dosage: 30 UG QW IM
     Route: 030
     Dates: start: 20070126
  2. PROVIGIL [Concomitant]
  3. POTASSIUM CHLORIDE [Concomitant]
  4. BACLOFEN [Concomitant]
  5. EFFEXOR [Concomitant]
  6. FLOMAX [Concomitant]
  7. LASIX [Concomitant]
  8. SYNTHROID [Concomitant]
  9. BETHANECHOL [Concomitant]
  10. TRAZODONE HCL [Concomitant]
  11. METHADONE HCL [Concomitant]
  12. FOSAMAX [Concomitant]
  13. HEPARIN [Concomitant]

REACTIONS (9)
  - BACTERAEMIA [None]
  - BLOOD CULTURE POSITIVE [None]
  - BLOOD PRESSURE ABNORMAL [None]
  - CONDITION AGGRAVATED [None]
  - ESCHERICHIA INFECTION [None]
  - HYDRONEPHROSIS [None]
  - MULTIPLE SCLEROSIS [None]
  - PYELONEPHRITIS [None]
  - URINARY TRACT INFECTION [None]
